FAERS Safety Report 20346066 (Version 4)
Quarter: 2025Q2

REPORT INFORMATION
  Report Type: Spontaneous
  Country: DE (occurrence: DE)
  Receive Date: 20220118
  Receipt Date: 20250415
  Transmission Date: 20250716
  Serious: Yes (Life-Threatening, Other)
  Sender: TEVA
  Company Number: DE-002147023-NVSC2020DE162883

PATIENT
  Age: 73 Year
  Sex: Female
  Weight: 73 kg

DRUGS (20)
  1. FULVESTRANT [Suspect]
     Active Substance: FULVESTRANT
     Indication: Breast cancer metastatic
     Dosage: 500 MG, Q4W (DAILY DOSE) (LAST ADMIISTARTION DOSE DATE WAS 02 JUL 2020)
     Route: 030
     Dates: start: 20200411, end: 20200702
  2. FULVESTRANT [Suspect]
     Active Substance: FULVESTRANT
     Indication: Breast cancer metastatic
     Dosage: 500 MG, Q4W
     Route: 030
     Dates: start: 20210715, end: 20210715
  3. LEVOTHYROXINE [Concomitant]
     Active Substance: LEVOTHYROXINE
     Indication: Hypothyroidism
     Dosage: 150 UG (ONCE IN THE MORNING / EVERY 7 DAYS)
     Route: 048
     Dates: start: 20200411, end: 20200525
  4. ZOMETA [Concomitant]
     Active Substance: ZOLEDRONIC ACID
     Indication: Product used for unknown indication
     Route: 042
     Dates: start: 20200411, end: 20200525
  5. KISQALI [Suspect]
     Active Substance: RIBOCICLIB SUCCINATE
     Indication: Breast cancer metastatic
     Dosage: 400 MG, QD (SCHEMA 21 DAYS INTAKE, THAN 7 DAYS PAUSE)
     Route: 048
     Dates: start: 20200704, end: 20200715
  6. KISQALI [Suspect]
     Active Substance: RIBOCICLIB SUCCINATE
     Indication: Breast cancer metastatic
     Dosage: 600 MG, QD (SCHEMA 21 DAYS INTAKE, THAN 7 DAYS PAUSE)
     Route: 048
     Dates: start: 20200411, end: 20200525
  7. RIBOCICLIB [Suspect]
     Active Substance: RIBOCICLIB
     Indication: Hormone receptor positive HER2 negative breast cancer
     Dosage: 400 MG, QD (SCHEMA 21 DAYS INTAKE, THAN 7 DAYS PAUSE);04-JUL-2020 00:00
     Route: 048
     Dates: start: 20200704, end: 20200715
  8. RIBOCICLIB [Suspect]
     Active Substance: RIBOCICLIB
     Indication: Hormone receptor positive HER2 negative breast cancer
     Dosage: 600 MG, QD, CYCLIC (SCHEMA 21 DAYS INTAKE, THAN 7 DAYS PAUSE)
     Route: 048
     Dates: start: 20200411, end: 20200525
  9. RIBOCICLIB [Suspect]
     Active Substance: RIBOCICLIB
     Indication: Hormone receptor positive HER2 negative breast cancer
     Dosage: 600 MG, QD (SCHEMA 21 DAYS INTAKE, THAN 7 DAYS PAUSE);11-APR-2020 00:00
     Route: 048
     Dates: end: 20200525
  10. CANDESARTAN [Concomitant]
     Active Substance: CANDESARTAN
     Indication: Hypertension
     Dosage: 16 MG, QD (ONCE IN THE MORNING)
     Route: 048
     Dates: start: 20200411, end: 20200525
  11. PALBOCICLIB [Suspect]
     Active Substance: PALBOCICLIB
     Indication: Hormone receptor positive HER2 negative breast cancer
     Route: 048
     Dates: start: 20210806, end: 20240808
  12. PALBOCICLIB [Suspect]
     Active Substance: PALBOCICLIB
     Indication: Hormone receptor positive HER2 negative breast cancer
     Dosage: 125 MG, 1X/DAY
     Route: 048
     Dates: start: 20200912, end: 20210624
  13. PALBOCICLIB [Suspect]
     Active Substance: PALBOCICLIB
     Indication: Hormone receptor positive HER2 negative breast cancer
     Route: 048
     Dates: start: 20210702, end: 20210729
  14. PALBOCICLIB [Suspect]
     Active Substance: PALBOCICLIB
     Indication: Hormone receptor positive HER2 negative breast cancer
     Route: 048
     Dates: start: 20200912, end: 20210624
  15. PALBOCICLIB [Suspect]
     Active Substance: PALBOCICLIB
     Indication: Hormone receptor positive HER2 negative breast cancer
     Route: 048
     Dates: start: 20200801, end: 20200821
  16. PALBOCICLIB [Suspect]
     Active Substance: PALBOCICLIB
     Indication: Hormone receptor positive HER2 negative breast cancer
     Route: 048
     Dates: start: 20210702, end: 20210729
  17. PALBOCICLIB [Suspect]
     Active Substance: PALBOCICLIB
     Indication: Hormone receptor positive HER2 negative breast cancer
     Route: 048
     Dates: start: 20210808
  18. PALBOCICLIB [Suspect]
     Active Substance: PALBOCICLIB
     Indication: Hormone receptor positive HER2 negative breast cancer
     Route: 048
     Dates: start: 20210806
  19. LEVOTHYROXINE [Concomitant]
     Active Substance: LEVOTHYROXINE
     Indication: Hypothyroidism
     Route: 048
     Dates: start: 20200914
  20. CANDESARTAN [Concomitant]
     Active Substance: CANDESARTAN
     Indication: Hypertension
     Dosage: 16 MG, QD (ONCE IN THE MORNING)
     Route: 048
     Dates: start: 20190815, end: 20200525

REACTIONS (20)
  - Neutropenia [Recovered/Resolved]
  - Thrombocytopenia [Recovered/Resolved]
  - Neutropenia [Recovered/Resolved]
  - Neutropenia [Recovered/Resolved]
  - Aspartate aminotransferase increased [Recovered/Resolved]
  - Back pain [Recovered/Resolved]
  - Alanine aminotransferase increased [Recovered/Resolved]
  - Diarrhoea [Recovered/Resolved]
  - Neutropenia [Recovered/Resolved]
  - Neutropenia [Recovered/Resolved]
  - Dyspepsia [Recovered/Resolved]
  - Neutropenia [Recovered/Resolved]
  - Alanine aminotransferase increased [Recovered/Resolved]
  - Joint stiffness [Not Recovered/Not Resolved]
  - Neutropenia [Recovered/Resolved]
  - Back pain [Recovering/Resolving]
  - Abdominal pain [Recovered/Resolved]
  - Dyspepsia [Not Recovered/Not Resolved]
  - Pulpitis dental [Recovered/Resolved]
  - Fatigue [Not Recovered/Not Resolved]

NARRATIVE: CASE EVENT DATE: 20200522
